FAERS Safety Report 9941666 (Version 1)
Quarter: 2014Q1

REPORT INFORMATION
  Report Type: Report from Study
  Country: US (occurrence: US)
  Receive Date: 20140303
  Receipt Date: 20140303
  Transmission Date: 20141002
  Serious: No
  Sender: FDA-Public Use
  Company Number: US-ABBVIE-13P-163-1038683-00

PATIENT
  Age: 67 Year
  Sex: Female

DRUGS (13)
  1. HUMIRA [Suspect]
     Indication: PSORIATIC ARTHROPATHY
     Route: 058
     Dates: start: 20130104
  2. METFORMIN [Concomitant]
     Indication: DIABETES MELLITUS
     Dosage: 500 MG DAILY
  3. IBUPROFEN [Concomitant]
     Indication: PAIN
  4. TRAMADOL [Concomitant]
     Indication: PAIN
     Dosage: 1-2 EVERY 6 HOURS, AS REQUIRED
  5. SIMVASTATIN [Concomitant]
     Indication: BLOOD CHOLESTEROL INCREASED
     Dosage: DAILY
  6. LOSARTAN / HYDROCHLOROTHIAZID STADA [Concomitant]
     Indication: HYPERTENSION
     Dosage: DAILY
  7. AMLODIPINE [Concomitant]
     Indication: HYPERTENSION
     Dosage: 5 MG DAILY
  8. MVI [Concomitant]
     Indication: PRODUCT USED FOR UNKNOWN INDICATION
     Dosage: DAILY
  9. VITAMIN E [Concomitant]
     Indication: PRODUCT USED FOR UNKNOWN INDICATION
     Dosage: DAILY
  10. CALCIUM [Concomitant]
     Indication: PRODUCT USED FOR UNKNOWN INDICATION
     Dosage: DAILY
  11. B COMPLEX [Concomitant]
     Indication: PRODUCT USED FOR UNKNOWN INDICATION
     Dosage: DAILY
  12. FISH OIL [Concomitant]
     Indication: PRODUCT USED FOR UNKNOWN INDICATION
     Dosage: DAILY
  13. ASA [Concomitant]
     Indication: ANTICOAGULANT THERAPY
     Dosage: 81 MG DAILY

REACTIONS (1)
  - Injection site pain [Recovered/Resolved]
